FAERS Safety Report 8341812-1 (Version None)
Quarter: 2012Q2

REPORT INFORMATION
  Report Type: 
  Country: None (occurrence: None)
  Receive Date: 20120507
  Receipt Date: 20120426
  Transmission Date: 20120825
  Serious: Yes (Other)
  Sender: FDA-Public Use
  Company Number: US-ACTELION-A-US2011-56172

PATIENT

DRUGS (2)
  1. ADCIRCA [Concomitant]
  2. TRACLEER [Suspect]
     Indication: PULMONARY ARTERIAL HYPERTENSION
     Dosage: UNK
     Route: 048
     Dates: start: 20110706

REACTIONS (11)
  - HYPOTHYROIDISM [None]
  - SCLERODERMA [None]
  - ARTHRITIS [None]
  - BLOOD TESTOSTERONE DECREASED [None]
  - ERYTHEMA [None]
  - BLOOD IRON DECREASED [None]
  - ASTHENIA [None]
  - RENAL FAILURE [None]
  - ADRENAL INSUFFICIENCY [None]
  - PARKINSONISM [None]
  - DIALYSIS [None]
